FAERS Safety Report 23674391 (Version 1)
Quarter: 2024Q1

REPORT INFORMATION
  Report Type: Report from Study
  Country: FR (occurrence: FR)
  Receive Date: 20240326
  Receipt Date: 20240326
  Transmission Date: 20240410
  Serious: Yes (Other)
  Sender: FDA-Public Use
  Company Number: FR-002147023-NVSC2024FR062438

PATIENT
  Weight: 80 kg

DRUGS (1)
  1. PLUVICTO [Suspect]
     Active Substance: LUTETIUM LU-177 VIPIVOTIDE TETRAXETAN
     Indication: Prostate cancer
     Dosage: 7442 MBQ ONCE (1ST ADMINISTRATION)
     Route: 065
     Dates: start: 20240222, end: 20240222

REACTIONS (1)
  - Alanine aminotransferase increased [Unknown]

NARRATIVE: CASE EVENT DATE: 20240305
